FAERS Safety Report 6058233-7 (Version None)
Quarter: 2009Q1

REPORT INFORMATION
  Report Type: 
  Country: None (occurrence: None)
  Receive Date: 20090130
  Receipt Date: 20090122
  Transmission Date: 20090719
  Serious: Yes (Other)
  Sender: FDA-Public Use
  Company Number: BE-PFIZER INC-2009159538

PATIENT

DRUGS (1)
  1. ATORVASTATIN CALCIUM [Suspect]

REACTIONS (2)
  - BILE DUCT NECROSIS [None]
  - HEPATITIS CHOLESTATIC [None]
